FAERS Safety Report 8336320-8 (Version None)
Quarter: 2012Q2

REPORT INFORMATION
  Report Type: 
  Country: None (occurrence: None)
  Receive Date: 20120504
  Receipt Date: 20120425
  Transmission Date: 20120825
  Serious: Yes (Other)
  Sender: FDA-Public Use
  Company Number: PHEH2009US04200

PATIENT
  Sex: Male

DRUGS (2)
  1. EXJADE [Suspect]
     Indication: LYMPHOCYTIC LEUKAEMIA
     Dosage: 1500 MG, QD
     Route: 048
     Dates: start: 20090331, end: 20090630
  2. LYRICA [Suspect]

REACTIONS (5)
  - PROTEINURIA [None]
  - BLOOD CREATININE INCREASED [None]
  - WEIGHT INCREASED [None]
  - GENERALISED OEDEMA [None]
  - GRAFT VERSUS HOST DISEASE [None]
